FAERS Safety Report 13342012 (Version 1)
Quarter: 2017Q1

REPORT INFORMATION
  Report Type: Spontaneous
  Country: US (occurrence: US)
  Receive Date: 20170316
  Receipt Date: 20170316
  Transmission Date: 20170428
  Serious: No
  Sender: FDA-Public Use
  Company Number: US-ROCHE-1477431

PATIENT
  Sex: Female

DRUGS (2)
  1. XENICAL [Suspect]
     Active Substance: ORLISTAT
     Indication: PRODUCT USED FOR UNKNOWN INDICATION
     Route: 065
     Dates: start: 201405
  2. XENICAL [Suspect]
     Active Substance: ORLISTAT
     Dosage: SUSPECTS THIS PACK IS COUNTERFEIT
     Route: 065
     Dates: start: 201407

REACTIONS (3)
  - Diarrhoea [Unknown]
  - Suspected counterfeit product [Unknown]
  - Steatorrhoea [Unknown]
